FAERS Safety Report 10420249 (Version 1)
Quarter: 2014Q3

REPORT INFORMATION
  Report Type: Report from Study
  Country: US (occurrence: None)
  Receive Date: 20140804
  Receipt Date: 20140804
  Transmission Date: 20150326
  Serious: Yes (Hospitalization)
  Sender: FDA-Public Use
  Company Number: 2013US008731

PATIENT
  Age: 52 Year
  Weight: 72.6 kg

DRUGS (5)
  1. GLASSIA [Suspect]
     Active Substance: .ALPHA.1-PROTEINASE INHIBITOR HUMAN
     Indication: ALPHA-1 ANTI-TRYPSIN DEFICIENCY
     Dosage: 5000MG +/-10% WEEKLY, INTRAVENOUS
     Route: 042
     Dates: start: 2012
  2. ALBUTEROL?/00139501/ (SALBUTAMOL) [Concomitant]
  3. OXYGEN. [Concomitant]
     Active Substance: OXYGEN
  4. LISINOPRIL. [Concomitant]
     Active Substance: LISINOPRIL
  5. SPIRIVA [Concomitant]
     Active Substance: TIOTROPIUM BROMIDE MONOHYDRATE

REACTIONS (4)
  - Dyspnoea [None]
  - Malaise [None]
  - Chronic obstructive pulmonary disease [None]
  - Cough [None]

NARRATIVE: CASE EVENT DATE: 20130724
